FAERS Safety Report 25313890 (Version 7)
Quarter: 2025Q3

REPORT INFORMATION
  Report Type: Spontaneous
  Country: US (occurrence: US)
  Receive Date: 20250514
  Receipt Date: 20250729
  Transmission Date: 20251020
  Serious: No
  Sender: PFIZER
  Company Number: US-PFIZER INC-202500098782

PATIENT
  Age: 9 Year
  Sex: Female
  Weight: 33.8 kg

DRUGS (2)
  1. GENOTROPIN [Suspect]
     Active Substance: SOMATROPIN
     Indication: Short stature
     Route: 058
  2. GENOTROPIN [Suspect]
     Active Substance: SOMATROPIN
     Route: 058

REACTIONS (4)
  - Device use issue [Unknown]
  - Device information output issue [Unknown]
  - Drug dose omission by device [Unknown]
  - Expired device used [Unknown]
